FAERS Safety Report 7614107-9 (Version None)
Quarter: 2011Q3

REPORT INFORMATION
  Report Type: 
  Country: None (occurrence: None)
  Receive Date: 20110708
  Receipt Date: 20110628
  Transmission Date: 20111222
  Serious: No
  Sender: FDA-Public Use
  Company Number: MC201100293

PATIENT
  Age: 59 Year
  Sex: Female

DRUGS (1)
  1. ANGIOMAX [Suspect]

REACTIONS (2)
  - DISEASE COMPLICATION [None]
  - CARDIO-RESPIRATORY ARREST [None]
